FAERS Safety Report 11809068 (Version 11)
Quarter: 2017Q4

REPORT INFORMATION
  Report Type: Spontaneous
  Country: JP (occurrence: JP)
  Receive Date: 20151207
  Receipt Date: 20171113
  Transmission Date: 20180320
  Serious: Yes (Other)
  Sender: FDA-Public Use
  Company Number: PHJP2015JP021991

PATIENT
  Age: 4 Year
  Sex: Male
  Weight: 15 kg

DRUGS (12)
  1. SANDIMMUN INFUSION [Suspect]
     Active Substance: CYCLOSPORINE
     Indication: IMMUNOSUPPRESSANT DRUG THERAPY
     Dosage: 22.5 MG, QD
     Route: 041
     Dates: end: 20131215
  2. CELLCEPT [Suspect]
     Active Substance: MYCOPHENOLATE MOFETIL\MYCOPHENOLATE MOFETIL HYDROCHLORIDE
     Indication: RENAL TRANSPLANT
     Dosage: 200 MG, BID
     Route: 048
     Dates: start: 20131211
  3. SOL-MELCORT [Suspect]
     Active Substance: METHYLPREDNISOLONE SODIUM SUCCINATE
     Indication: IMMUNOSUPPRESSANT DRUG THERAPY
     Dosage: 20 MG, QD
     Route: 042
     Dates: end: 20131219
  4. SEFMAZON [Concomitant]
     Active Substance: CEFAZOLIN
     Indication: ANTIBIOTIC PROPHYLAXIS
     Dosage: 0.15 G, TID
     Route: 042
     Dates: start: 20131211, end: 20131217
  5. DOPAMINE HYDROCHLORIDE. [Concomitant]
     Active Substance: DOPAMINE HYDROCHLORIDE
     Indication: BLOOD PRESSURE DECREASED
     Dosage: 65 MG (3MG/KG/MIN), UNK
     Route: 042
     Dates: start: 20131211, end: 20131213
  6. SANDIMMUN INFUSION [Suspect]
     Active Substance: CYCLOSPORINE
     Indication: RENAL TRANSPLANT
     Dosage: 30 MG, QD
     Route: 041
     Dates: start: 20131211, end: 20131215
  7. SOL-MELCORT [Suspect]
     Active Substance: METHYLPREDNISOLONE SODIUM SUCCINATE
     Indication: RENAL TRANSPLANT
     Dosage: 150 MG, QD
     Route: 042
     Dates: start: 20131211, end: 20131219
  8. SIMULECT [Suspect]
     Active Substance: BASILIXIMAB
     Indication: RENAL TRANSPLANT
     Dosage: 10 MG, UNK
     Route: 042
     Dates: start: 20131211, end: 20131215
  9. SIMULECT [Suspect]
     Active Substance: BASILIXIMAB
     Indication: IMMUNOSUPPRESSANT DRUG THERAPY
  10. HANP [Concomitant]
     Active Substance: CARPERITIDE
     Indication: CARDIAC FAILURE
     Dosage: 540 UG (0.025UG/KG/MIN), UNK
     Route: 042
     Dates: start: 20131211, end: 20131215
  11. CELLCEPT [Suspect]
     Active Substance: MYCOPHENOLATE MOFETIL\MYCOPHENOLATE MOFETIL HYDROCHLORIDE
     Indication: IMMUNOSUPPRESSANT DRUG THERAPY
  12. MIZORIBINE [Concomitant]
     Active Substance: MIZORIBINE
     Indication: PRODUCT USED FOR UNKNOWN INDICATION
     Dosage: UNK
     Route: 065

REACTIONS (9)
  - BK virus infection [Recovered/Resolved]
  - Kidney transplant rejection [Unknown]
  - Blood creatinine increased [Unknown]
  - Specific gravity body fluid abnormal [Unknown]
  - Vasodilatation [Unknown]
  - Blood pressure increased [Unknown]
  - Hypertensive encephalopathy [Recovered/Resolved]
  - Cytomegalovirus viraemia [Recovering/Resolving]
  - Oliguria [Recovered/Resolved]

NARRATIVE: CASE EVENT DATE: 20131211
